FAERS Safety Report 4362552-X (Version None)
Quarter: 2004Q2

REPORT INFORMATION
  Report Type: 
  Country: None (occurrence: None)
  Receive Date: 20040517
  Receipt Date: 20040329
  Transmission Date: 20050107
  Serious: Yes (Other)
  Sender: FDA-Public Use
  Company Number: S04-USA-01853-01

PATIENT
  Age: 86 Year
  Sex: Male
  Weight: 83.0083 kg

DRUGS (8)
  1. NAMENDA [Suspect]
     Indication: DEMENTIA ALZHEIMER'S TYPE
     Dosage: 5 MG QD PO
     Route: 048
     Dates: start: 20040211, end: 20040217
  2. PAXIL [Concomitant]
  3. COUMADIN [Concomitant]
  4. HYPERTENSION MEDICATION [Concomitant]
  5. VITAMIN E [Concomitant]
  6. ASPIRIN [Concomitant]
  7. GALANTAMINE [Concomitant]
  8. AZO-CRANBERRY [Concomitant]

REACTIONS (4)
  - APRAXIA [None]
  - BLOOD GLUCOSE DECREASED [None]
  - HAEMATOCRIT DECREASED [None]
  - THYROXINE DECREASED [None]
